FAERS Safety Report 13717158 (Version 1)
Quarter: 2017Q3

REPORT INFORMATION
  Report Type: Spontaneous
  Country: US (occurrence: US)
  Receive Date: 20170704
  Receipt Date: 20170704
  Transmission Date: 20171127
  Serious: Yes (Life-Threatening, Hospitalization, Disabling)
  Sender: FDA-Public Use
  Company Number: None

PATIENT
  Age: 47 Year
  Sex: Female
  Weight: 95.85 kg

DRUGS (21)
  1. TRIAMTERENE AND HYDROCHLOROTHIAZIDE [Concomitant]
     Active Substance: HYDROCHLOROTHIAZIDE\TRIAMTERENE
  2. ZYRTEK [Concomitant]
     Active Substance: CETIRIZINE HYDROCHLORIDE
  3. MULTIVITAMIN [Concomitant]
     Active Substance: VITAMINS
  4. CALCITRIOL. [Concomitant]
     Active Substance: CALCITRIOL
  5. ZOFRAN [Concomitant]
     Active Substance: ONDANSETRON HYDROCHLORIDE
  6. MIRALAX [Concomitant]
     Active Substance: POLYETHYLENE GLYCOL 3350
  7. ZANTAC [Concomitant]
     Active Substance: RANITIDINE HYDROCHLORIDE
  8. MONTELUKAST [Concomitant]
     Active Substance: MONTELUKAST SODIUM
  9. RESTASIS [Concomitant]
     Active Substance: CYCLOSPORINE
  10. SYNTHROID [Concomitant]
     Active Substance: LEVOTHYROXINE SODIUM
  11. GAVISCON EXTRA STRENGTH [Concomitant]
     Active Substance: ALUMINUM HYDROXIDE\MAGNESIUM CARBONATE
  12. QVAR [Concomitant]
     Active Substance: BECLOMETHASONE DIPROPIONATE
  13. TOPAMAX [Concomitant]
     Active Substance: TOPIRAMATE
  14. ANCEF [Suspect]
     Active Substance: CEFAZOLIN SODIUM
     Indication: SHOULDER OPERATION
     Dosage: QUANTITY:1 IV;OTHER FREQUENCY:IV DURING SURGERY;?
     Route: 042
     Dates: start: 20170523, end: 20170523
  15. ASPIRIN. [Concomitant]
     Active Substance: ASPIRIN
  16. SENOKOT [Concomitant]
     Active Substance: SENNOSIDES
  17. I-CAPS WITH XEANTHININ AND LUTEIN [Concomitant]
  18. MYRBETRIQ [Concomitant]
     Active Substance: MIRABEGRON
  19. PREDNISONE. [Concomitant]
     Active Substance: PREDNISONE
  20. VITAMIN D3 [Concomitant]
     Active Substance: CHOLECALCIFEROL
  21. PANTOPRAZOLE [Concomitant]
     Active Substance: PANTOPRAZOLE

REACTIONS (19)
  - Respiratory alkalosis [None]
  - Tachypnoea [None]
  - Migraine [None]
  - Dyspnoea [None]
  - Pyrexia [None]
  - Hepato-lenticular degeneration [None]
  - Nausea [None]
  - Hypothyroidism [None]
  - Contusion [None]
  - Thrombocytopenia [None]
  - Jaundice [None]
  - Autoimmune hepatitis [None]
  - Haemolytic anaemia [None]
  - Infrequent bowel movements [None]
  - Acute hepatic failure [None]
  - Decreased appetite [None]
  - Splenomegaly [None]
  - Autoimmune disorder [None]
  - Hypoparathyroidism [None]

NARRATIVE: CASE EVENT DATE: 20170617
